FAERS Safety Report 12984669 (Version 1)
Quarter: 2016Q4

REPORT INFORMATION
  Report Type: Report from Study
  Country: US (occurrence: US)
  Receive Date: 20161129
  Receipt Date: 20161129
  Transmission Date: 20170207
  Serious: Yes (Hospitalization)
  Sender: FDA-Public Use
  Company Number: US-ALLERGAN-1677833US

PATIENT
  Age: 45 Year
  Sex: Female
  Weight: 117.7 kg

DRUGS (6)
  1. LINACLOTIDE UNK [Suspect]
     Active Substance: LINACLOTIDE
     Indication: CONSTIPATION
     Dosage: UNK
     Route: 048
     Dates: start: 20151120, end: 20161118
  2. GLYBURIDE. [Concomitant]
     Active Substance: GLYBURIDE
     Indication: DIABETES MELLITUS
     Dosage: 4 MG, BID
     Route: 048
     Dates: start: 201608
  3. METFORMIN [Concomitant]
     Active Substance: METFORMIN HYDROCHLORIDE
     Indication: DIABETES MELLITUS
     Dosage: 1000 MG, BID
     Route: 048
     Dates: start: 201406
  4. BENAZEPRIL [Concomitant]
     Active Substance: BENAZEPRIL HYDROCHLORIDE
     Indication: HYPERTENSION
     Dosage: 20 MG, QD
     Route: 048
     Dates: start: 201406
  5. EXEMESTANE. [Concomitant]
     Active Substance: EXEMESTANE
     Indication: CERVIX NEOPLASM
     Dosage: 1 TABLET
     Route: 048
     Dates: start: 201605
  6. DULCOLAX NOS [Concomitant]
     Active Substance: BISACODYL OR DOCUSATE SODIUM
     Indication: CONSTIPATION
     Dosage: 1 TABLET
     Route: 048
     Dates: start: 2000

REACTIONS (1)
  - Pyelonephritis acute [Recovering/Resolving]

NARRATIVE: CASE EVENT DATE: 20160916
